FAERS Safety Report 20092228 (Version 1)
Quarter: 2021Q4

REPORT INFORMATION
  Report Type: Spontaneous
  Country: PL (occurrence: PL)
  Receive Date: 20211119
  Receipt Date: 20211119
  Transmission Date: 20220303
  Serious: Yes (Hospitalization)
  Sender: FDA-Public Use
  Company Number: None

PATIENT
  Age: 41 Year
  Sex: Female
  Weight: 64 kg

DRUGS (2)
  1. QUETIAPINE [Suspect]
     Active Substance: QUETIAPINE
     Route: 048
     Dates: start: 20210214, end: 20210214
  2. LITHIUM [Suspect]
     Active Substance: LITHIUM
     Route: 048
     Dates: start: 20210214, end: 20210214

REACTIONS (3)
  - Suicide attempt [Unknown]
  - Depressed mood [Unknown]
  - Confusional state [Unknown]
